FAERS Safety Report 6589403-7 (Version None)
Quarter: 2010Q1

REPORT INFORMATION
  Report Type: 
  Country: None (occurrence: None)
  Receive Date: 20100205
  Receipt Date: 20091218
  Transmission Date: 20100710
  Serious: Yes (Death)
  Sender: FDA-Public Use
  Company Number: 2009AL005516

PATIENT
  Age: 66 Year
  Sex: Male

DRUGS (2)
  1. AMLODIPINE BESYLATE [Suspect]
     Indication: HYPERTENSION
     Dosage: PO
     Route: 048
  2. SIMVASTATIN [Concomitant]

REACTIONS (19)
  - ACCIDENTAL OVERDOSE [None]
  - ARTERIOSCLEROSIS [None]
  - ARTERIOSCLEROSIS CORONARY ARTERY [None]
  - CARDIAC FAILURE [None]
  - CONNECTIVE TISSUE DISORDER [None]
  - COR PULMONALE CHRONIC [None]
  - EMPHYSEMA [None]
  - HEART RATE IRREGULAR [None]
  - HEPATITIS [None]
  - HYPOTENSION [None]
  - MITRAL VALVE PROLAPSE [None]
  - MYOCARDIAL FIBROSIS [None]
  - PULMONARY FIBROSIS [None]
  - PULMONARY OEDEMA [None]
  - PULMONARY VALVE STENOSIS [None]
  - RESPIRATORY FAILURE [None]
  - RIB FRACTURE [None]
  - STERNAL FRACTURE [None]
  - THERAPEUTIC AGENT TOXICITY [None]
